FAERS Safety Report 9140347 (Version 2)
Quarter: 2013Q1

REPORT INFORMATION
  Report Type: Spontaneous
  Country: US (occurrence: US)
  Receive Date: 20130305
  Receipt Date: 20130308
  Transmission Date: 20140127
  Serious: Yes (Other)
  Sender: FDA-Public Use
  Company Number: US-ASTRAZENECA-2013SE13447

PATIENT
  Age: 1030 Day
  Sex: Male

DRUGS (6)
  1. SYNAGIS [Suspect]
     Indication: RESPIRATORY SYNCYTIAL VIRUS INFECTION
     Route: 030
     Dates: start: 201102, end: 20130214
  2. SYNAGIS [Suspect]
     Indication: RESPIRATORY SYNCYTIAL VIRUS INFECTION
     Dosage: 1ST DOSE OF 172 MG, ONCE/SINGLE ADMINISTRATION A MONTH
     Route: 030
     Dates: start: 20121120
  3. SYNAGIS [Suspect]
     Indication: RESPIRATORY SYNCYTIAL VIRUS INFECTION
     Dosage: 2ND DOSE OF 177 MG, ONCE/SINGLE ADMINISTRATION A MONTH
     Route: 030
     Dates: start: 20130108
  4. SYNAGIS [Suspect]
     Indication: RESPIRATORY SYNCYTIAL VIRUS INFECTION
     Dosage: 3RD DOSE OF 171.75 MG, ONCE/SINGLE ADMINISTRATION A MONTH
     Route: 030
     Dates: start: 20130214, end: 20130214
  5. LUMIZIME [Suspect]
     Indication: GLYCOGEN STORAGE DISEASE TYPE II
     Route: 065
     Dates: start: 20130215
  6. MYOZYME [Suspect]
     Dosage: A TRIAL DRUG PRESCRIBED BY GENETICS
     Route: 065

REACTIONS (4)
  - Urticaria [Unknown]
  - Rash [Unknown]
  - Tremor [Unknown]
  - Pneumonia [Unknown]
